FAERS Safety Report 5639304-3 (Version None)
Quarter: 2008Q1

REPORT INFORMATION
  Report Type: 
  Country: None (occurrence: None)
  Receive Date: 20080226
  Receipt Date: 20080130
  Transmission Date: 20080703
  Serious: No
  Sender: FDA-Public Use
  Company Number: US-BOEHRINGER INGELHEIM GMBH, GERMANY-2008-BP-01479BP

PATIENT
  Sex: Female

DRUGS (3)
  1. SPIRIVA [Suspect]
     Indication: CHRONIC OBSTRUCTIVE PULMONARY DISEASE
     Route: 055
     Dates: start: 20070701
  2. SPIRIVA [Suspect]
     Indication: BRONCHITIS CHRONIC
  3. ALBUTEROL [Concomitant]
     Dosage: WHEN SPIRIVA DOES NOT LAST 24 HOURS.
     Dates: start: 20071201

REACTIONS (4)
  - COUGH [None]
  - DYSPNOEA EXERTIONAL [None]
  - PRODUCTIVE COUGH [None]
  - THERAPEUTIC RESPONSE DECREASED [None]
